FAERS Safety Report 8057464-4 (Version None)
Quarter: 2012Q1

REPORT INFORMATION
  Report Type: 
  Country: None (occurrence: None)
  Receive Date: 20120119
  Receipt Date: 20120110
  Transmission Date: 20120608
  Serious: Yes (Hospitalization)
  Sender: FDA-Public Use
  Company Number: US-ASTRAZENECA-2011SE78134

PATIENT
  Age: 57 Year
  Sex: Female

DRUGS (16)
  1. TOPROL-XL [Suspect]
     Route: 048
  2. COUMADIN [Concomitant]
  3. METFORMIN [Concomitant]
  4. PREVACID [Concomitant]
  5. METFORMIN [Concomitant]
  6. TOPROL-XL [Suspect]
     Route: 048
  7. TOPROL-XL [Suspect]
     Route: 048
  8. NORVASC [Concomitant]
  9. CARDIZEM CD [Concomitant]
  10. ASPIRIN [Concomitant]
  11. LIPITOR [Concomitant]
  12. LIPITOR [Concomitant]
  13. NORVASC [Concomitant]
  14. LISINOPRIL [Concomitant]
  15. PRILOSEC [Concomitant]
     Route: 048
  16. LISINOPRIL [Concomitant]

REACTIONS (16)
  - ATRIAL FIBRILLATION [None]
  - HYPERLIPIDAEMIA [None]
  - CHEST PAIN [None]
  - HYPERHIDROSIS [None]
  - HYPERTENSION [None]
  - OSTEOARTHRITIS [None]
  - INTERMITTENT CLAUDICATION [None]
  - TYPE 2 DIABETES MELLITUS [None]
  - ARTHRALGIA [None]
  - DYSPNOEA [None]
  - GASTROOESOPHAGEAL REFLUX DISEASE [None]
  - ARTERIOSCLEROSIS [None]
  - GASTROINTESTINAL HAEMORRHAGE [None]
  - DIVERTICULITIS [None]
  - PALPITATIONS [None]
  - ACCIDENT AT WORK [None]
